FAERS Safety Report 7342193-2 (Version None)
Quarter: 2011Q1

REPORT INFORMATION
  Report Type: 
  Country: None (occurrence: None)
  Receive Date: 20110309
  Receipt Date: 20110224
  Transmission Date: 20110831
  Serious: Yes (Life-Threatening)
  Sender: FDA-Public Use
  Company Number: HU-MYLANLABS-2011S1004013

PATIENT
  Age: 18 Year
  Sex: Male

DRUGS (3)
  1. CLONAZEPAM [Suspect]
     Indication: TOURETTE'S DISORDER
     Route: 065
     Dates: end: 20080101
  2. TIAPRIDE [Suspect]
     Indication: TOURETTE'S DISORDER
     Route: 065
     Dates: end: 20080101
  3. HALOPERIDOL [Suspect]
     Indication: TOURETTE'S DISORDER
     Route: 065
     Dates: start: 19980101, end: 20080101

REACTIONS (4)
  - TIC [None]
  - WITHDRAWAL SYNDROME [None]
  - SINUS TACHYCARDIA [None]
  - BLOOD CREATINE PHOSPHOKINASE INCREASED [None]
